FAERS Safety Report 4307623-9 (Version None)
Quarter: 2004Q1

REPORT INFORMATION
  Report Type: 
  Country: None (occurrence: None)
  Receive Date: 20040225
  Receipt Date: 20030604
  Transmission Date: 20041129
  Serious: Yes (Hospitalization)
  Sender: FDA-Public Use
  Company Number: WAES 0306USA00538

PATIENT
  Age: 62 Year
  Sex: Female
  Weight: 76.2043 kg

DRUGS (6)
  1. ZOCOR [Suspect]
     Indication: HYPERCHOLESTEROLAEMIA
     Dosage: 20MG/DAILY/PO
     Route: 048
     Dates: start: 20010101, end: 20030101
  2. ZOCOR [Suspect]
     Indication: HYPERLIPIDAEMIA
     Dosage: 20MG/DAILY/PO
     Route: 048
     Dates: start: 20010101, end: 20030101
  3. ZOCOR [Suspect]
     Indication: HYPERCHOLESTEROLAEMIA
     Dosage: 20MG/DAILY/PO
     Route: 048
     Dates: start: 20030101, end: 20030101
  4. ZOCOR [Suspect]
     Indication: HYPERLIPIDAEMIA
     Dosage: 20MG/DAILY/PO
     Route: 048
     Dates: start: 20030101, end: 20030101
  5. ALLEGRA [Concomitant]
  6. METOPROLOL [Concomitant]

REACTIONS (4)
  - EPSTEIN-BARR VIRUS INFECTION [None]
  - HEPATITIS [None]
  - HEPATITIS C [None]
  - URINARY TRACT INFECTION [None]
